FAERS Safety Report 6868780-3 (Version None)
Quarter: 2010Q3

REPORT INFORMATION
  Report Type: 
  Country: None (occurrence: None)
  Receive Date: 20100722
  Receipt Date: 20080615
  Transmission Date: 20110219
  Serious: No
  Sender: FDA-Public Use
  Company Number: US-PFIZER INC-2008051033

PATIENT
  Sex: Female
  Weight: 79.545 kg

DRUGS (4)
  1. CHANTIX [Suspect]
     Indication: SMOKING CESSATION THERAPY
     Dates: start: 20080401
  2. SPIRIVA [Concomitant]
     Indication: CHRONIC OBSTRUCTIVE PULMONARY DISEASE
  3. KINERET [Concomitant]
     Indication: RHEUMATOID ARTHRITIS
  4. ACTONEL [Concomitant]
     Indication: OSTEOPOROSIS

REACTIONS (6)
  - ANXIETY [None]
  - CHEST DISCOMFORT [None]
  - CRYING [None]
  - FRUSTRATION [None]
  - ORAL PAIN [None]
  - PSYCHIATRIC SYMPTOM [None]
